FAERS Safety Report 7437668-1 (Version None)
Quarter: 2011Q2

REPORT INFORMATION
  Report Type: 
  Country: None (occurrence: None)
  Receive Date: 20110426
  Receipt Date: 20110414
  Transmission Date: 20111010
  Serious: Yes (Other)
  Sender: FDA-Public Use
  Company Number: ES-SANOFI-AVENTIS-2011SA024639

PATIENT
  Sex: Female

DRUGS (3)
  1. PLAVIX [Suspect]
     Route: 048
     Dates: end: 20100301
  2. PLAVIX [Suspect]
     Route: 048
     Dates: start: 20100301, end: 20100701
  3. PLAVIX [Suspect]
     Dates: start: 20100701

REACTIONS (8)
  - CAROTID ARTERY OCCLUSION [None]
  - BALANCE DISORDER [None]
  - BLINDNESS UNILATERAL [None]
  - APHASIA [None]
  - PULSE ABSENT [None]
  - OFF LABEL USE [None]
  - CEREBROVASCULAR ACCIDENT [None]
  - DRUG INEFFECTIVE [None]
